FAERS Safety Report 5856598-X (Version None)
Quarter: 2008Q3

REPORT INFORMATION
  Report Type: 
  Country: None (occurrence: None)
  Receive Date: 20080825
  Receipt Date: 20080812
  Transmission Date: 20090109
  Serious: Yes (Hospitalization)
  Sender: FDA-Public Use
  Company Number: RU-MERCK-0806RUS00003

PATIENT
  Age: 48 Year
  Sex: Male

DRUGS (4)
  1. ZOCOR [Suspect]
     Indication: MYOCARDIAL ISCHAEMIA
     Route: 048
  2. EGILOC [Concomitant]
     Indication: MYOCARDIAL ISCHAEMIA
     Route: 048
  3. ENAP [Concomitant]
     Indication: MYOCARDIAL ISCHAEMIA
     Route: 048
  4. CARDIOMAGNYL [Concomitant]
     Indication: MYOCARDIAL ISCHAEMIA
     Route: 048

REACTIONS (1)
  - MYOCARDIAL INFARCTION [None]
